FAERS Safety Report 18881386 (Version 7)
Quarter: 2021Q3

REPORT INFORMATION
  Report Type: Spontaneous
  Country: US (occurrence: US)
  Receive Date: 20210212
  Receipt Date: 20210713
  Transmission Date: 20211014
  Serious: Yes (Other)
  Sender: FDA-Public Use
  Company Number: US-AKCEA THERAPEUTICS-2020IS001671

PATIENT
  Age: 60 Year
  Sex: Male

DRUGS (2)
  1. TEGSEDI [Suspect]
     Active Substance: INOTERSEN SODIUM
     Indication: HEREDITARY NEUROPATHIC AMYLOIDOSIS
     Route: 058
  2. ISSD (INTEGRATED SYRINGE SAFETY DEVICE) [Suspect]
     Active Substance: DEVICE

REACTIONS (9)
  - Fluid retention [Unknown]
  - Protein urine present [Unknown]
  - Cardiac amyloidosis [Unknown]
  - Urine protein/creatinine ratio abnormal [Unknown]
  - Creatinine urine abnormal [Unknown]
  - Urine abnormality [Unknown]
  - Glucose urine present [Unknown]
  - Platelet count decreased [Not Recovered/Not Resolved]
  - Urine ketone body present [Unknown]
